FAERS Safety Report 14557228 (Version 2)
Quarter: 2018Q1

REPORT INFORMATION
  Report Type: Report from Study
  Country: GB (occurrence: GB)
  Receive Date: 20180221
  Receipt Date: 20180302
  Transmission Date: 20180509
  Serious: Yes (Hospitalization, Other)
  Sender: FDA-Public Use
  Company Number: GB-CELGENEUS-GBR-20180203043

PATIENT
  Age: 82 Year
  Sex: Male

DRUGS (1)
  1. REVLIMID [Suspect]
     Active Substance: LENALIDOMIDE
     Indication: PLASMA CELL MYELOMA
     Route: 048

REACTIONS (1)
  - Rectal cancer [Recovered/Resolved]

NARRATIVE: CASE EVENT DATE: 20170420
